FAERS Safety Report 12980224 (Version 1)
Quarter: 2016Q4

REPORT INFORMATION
  Report Type: Spontaneous
  Country: US (occurrence: US)
  Receive Date: 20161128
  Receipt Date: 20161128
  Transmission Date: 20170207
  Serious: Yes (Other)
  Sender: FDA-Public Use
  Company Number: US-TEVA-715122USA

PATIENT
  Sex: Female

DRUGS (1)
  1. GLIMEPIRIDE. [Suspect]
     Active Substance: GLIMEPIRIDE
     Indication: STREPTOCOCCAL INFECTION
     Dosage: 12 MILLIGRAM DAILY;
     Dates: start: 20151130, end: 20151206

REACTIONS (14)
  - Loss of consciousness [Unknown]
  - Tremor [Unknown]
  - Migraine [Unknown]
  - Dizziness [Unknown]
  - Amnesia [Unknown]
  - Blood glucose decreased [Unknown]
  - Palpitations [Unknown]
  - Myalgia [Not Recovered/Not Resolved]
  - Gait disturbance [Not Recovered/Not Resolved]
  - Contusion [Unknown]
  - Haemorrhage [Unknown]
  - Hypertension [Not Recovered/Not Resolved]
  - Weight increased [Not Recovered/Not Resolved]
  - Fatigue [Not Recovered/Not Resolved]
